FAERS Safety Report 25728116 (Version 2)
Quarter: 2025Q3

REPORT INFORMATION
  Report Type: Spontaneous
  Country: EU (occurrence: EU)
  Receive Date: 20250826
  Receipt Date: 20250904
  Transmission Date: 20251021
  Serious: No
  Sender: PFIZER
  Company Number: EU-PFIZER INC-PV202500100321

PATIENT
  Age: 5 Year
  Sex: Male

DRUGS (1)
  1. GENOTROPIN [Suspect]
     Active Substance: SOMATROPIN
     Indication: Chronic kidney disease
     Route: 058
     Dates: start: 20250818

REACTIONS (3)
  - Device leakage [Unknown]
  - Wrong technique in device usage process [Unknown]
  - Incorrect dose administered [Unknown]
